FAERS Safety Report 8829211 (Version 2)
Quarter: 2012Q4

REPORT INFORMATION
  Report Type: Spontaneous
  Country: FR (occurrence: None)
  Receive Date: 20121004
  Receipt Date: 20121016
  Transmission Date: 20130627
  Serious: Yes (Life-Threatening, Hospitalization, Disabling)
  Sender: FDA-Public Use
  Company Number: DSM-2012-01036

PATIENT
  Age: 47 Year
  Sex: Female

DRUGS (10)
  1. OLMETEC [Suspect]
     Indication: HYPERTENSION ARTERIAL
     Dosage: 10 mg (10 mg, 1 in 1 D), Oral
     Route: 048
  2. SEROPLEX [Suspect]
     Indication: DEPRESSION
     Route: 048
     Dates: start: 20120727, end: 20120813
  3. CLIMASTON (ESTRADIOL, DYDROGESTERONE) (***) (ESTRADIOL, DYDROGESTERONE) [Concomitant]
  4. LEVOTHYROX (LEVOTHYROXINE SODIUM) (LEVOTHYROXINE SODIUM) [Concomitant]
  5. PREVISCAN (FLUINDIONE) (FLUINDIONE) [Concomitant]
  6. VERATRAN (CLOTIAZEPAM) (CLOTIAZEPAM) [Concomitant]
  7. CALCIPARINE (HEPARIN CALCIUM) (HEPARIN CALCIUM) [Concomitant]
  8. VOLIBRIS (AMBRISENTAN) (AMBRISENTAN) [Concomitant]
  9. REVATIO (SILDENAFIL CITRATE) (SILDENAFIL CITRATE) [Concomitant]
  10. REBIF (INTERFERON BETA-1A) (INTERFERON BETA-1A) [Concomitant]

REACTIONS (7)
  - Confusional state [None]
  - Hyponatraemia [None]
  - Osmotic demyelination syndrome [None]
  - Disorientation [None]
  - Metabolic disorder [None]
  - Blood potassium decreased [None]
  - Pulmonary hypertension [None]
